FAERS Safety Report 15656635 (Version 6)
Quarter: 2023Q4

REPORT INFORMATION
  Report Type: Spontaneous
  Country: US (occurrence: US)
  Receive Date: 20181126
  Receipt Date: 20231127
  Transmission Date: 20240110
  Serious: Yes (Hospitalization, Other)
  Sender: FDA-Public Use
  Company Number: US-GILEAD-2018-0376156

PATIENT
  Age: 48 Year
  Sex: Female
  Weight: 53.515 kg

DRUGS (33)
  1. ATRIPLA [Suspect]
     Active Substance: EFAVIRENZ\EMTRICITABINE\TENOFOVIR DISOPROXIL FUMARATE
     Indication: HIV infection
     Dosage: UNK
     Route: 048
     Dates: start: 2006, end: 20181203
  2. ATRIPLA [Suspect]
     Active Substance: EFAVIRENZ\EMTRICITABINE\TENOFOVIR DISOPROXIL FUMARATE
     Dosage: UNK
     Route: 048
     Dates: start: 2007, end: 20181203
  3. STRIBILD [Suspect]
     Active Substance: COBICISTAT\ELVITEGRAVIR\EMTRICITABINE\TENOFOVIR DISOPROXIL FUMARATE
     Indication: HIV infection
     Dosage: UNK
     Route: 048
     Dates: start: 20160210, end: 20160713
  4. TRUVADA [Suspect]
     Active Substance: EMTRICITABINE\TENOFOVIR DISOPROXIL FUMARATE
     Indication: HIV infection
     Dosage: UNK
     Route: 048
     Dates: start: 2004, end: 2005
  5. FOSAMAX [Concomitant]
     Active Substance: ALENDRONATE SODIUM
  6. PROLIA [Concomitant]
     Active Substance: DENOSUMAB
  7. CALCIUM\VITAMIN D [Concomitant]
     Active Substance: CALCIUM\VITAMIN D
  8. ALENDRONATE [Concomitant]
     Active Substance: ALENDRONATE SODIUM
  9. KLONOPIN [Concomitant]
     Active Substance: CLONAZEPAM
  10. VALIUM [Concomitant]
     Active Substance: DIAZEPAM
  11. CLORAZEPATE DIPOTASSIUM [Concomitant]
     Active Substance: CLORAZEPATE DIPOTASSIUM
  12. SEROQUEL [Concomitant]
     Active Substance: QUETIAPINE FUMARATE
  13. VENTOLIN HFA [Concomitant]
     Active Substance: ALBUTEROL SULFATE
  14. TRIUMEQ [Concomitant]
     Active Substance: ABACAVIR SULFATE\DOLUTEGRAVIR SODIUM\LAMIVUDINE
  15. MELOXICAM [Concomitant]
     Active Substance: MELOXICAM
  16. QUETIAPINE [Concomitant]
     Active Substance: QUETIAPINE
  17. METOCLOPRAMIDE [Concomitant]
     Active Substance: METOCLOPRAMIDE
  18. ONDANSETRON [Concomitant]
     Active Substance: ONDANSETRON
  19. ZOLPIDEM [Concomitant]
     Active Substance: ZOLPIDEM TARTRATE
  20. PROGESTERONE [Concomitant]
     Active Substance: PROGESTERONE
  21. HYDROMORPHONE [Concomitant]
     Active Substance: HYDROMORPHONE
  22. MORPHINE SULFATE [Concomitant]
     Active Substance: MORPHINE SULFATE
  23. ESTRADIOL [Concomitant]
     Active Substance: ESTRADIOL
  24. TIZANIDINE [Concomitant]
     Active Substance: TIZANIDINE
  25. CEFDINIR [Concomitant]
     Active Substance: CEFDINIR
  26. TERBINAFINE [Concomitant]
     Active Substance: TERBINAFINE
  27. PREMARIN [Concomitant]
     Active Substance: ESTROGENS, CONJUGATED
  28. CHANTIX [Concomitant]
     Active Substance: VARENICLINE TARTRATE
  29. AMOXICILLIN [Concomitant]
     Active Substance: AMOXICILLIN
  30. AMITIZA [Concomitant]
     Active Substance: LUBIPROSTONE
  31. MIRTAZAPINE [Concomitant]
     Active Substance: MIRTAZAPINE
  32. CALCIUM [Concomitant]
     Active Substance: CALCIUM
  33. VITAMIN D NOS [Concomitant]
     Active Substance: VITAMIN D NOS

REACTIONS (16)
  - Musculoskeletal disorder [Unknown]
  - Renal injury [Unknown]
  - Femur fracture [Unknown]
  - Osteoporosis [Not Recovered/Not Resolved]
  - Lower limb fracture [Recovered/Resolved]
  - Lower limb fracture [Not Recovered/Not Resolved]
  - Bone density decreased [Unknown]
  - Pain [Not Recovered/Not Resolved]
  - Emotional distress [Not Recovered/Not Resolved]
  - Anxiety [Not Recovered/Not Resolved]
  - Anhedonia [Not Recovered/Not Resolved]
  - Economic problem [Unknown]
  - Osteopenia [Not Recovered/Not Resolved]
  - Skeletal injury [Unknown]
  - Adverse drug reaction [Unknown]
  - Loss of personal independence in daily activities [Unknown]

NARRATIVE: CASE EVENT DATE: 20070101
